FAERS Safety Report 6441237-X (Version None)
Quarter: 2009Q4

REPORT INFORMATION
  Report Type: 
  Country: None (occurrence: None)
  Receive Date: 20091112
  Receipt Date: 20091029
  Transmission Date: 20100525
  Serious: Yes (Other)
  Sender: FDA-Public Use
  Company Number: SPV1-2009-02185

PATIENT
  Age: 10 Year
  Sex: Male
  Weight: 31.7 kg

DRUGS (2)
  1. DAYTRANA [Suspect]
     Indication: ATTENTION DEFICIT/HYPERACTIVITY DISORDER
     Dosage: 30 MG, 1X/DAY;QD, 30 MG, 1X/DAY:QD, TRANSDERMAL
     Route: 062
     Dates: start: 20080101, end: 20090601
  2. DAYTRANA [Suspect]
     Indication: ATTENTION DEFICIT/HYPERACTIVITY DISORDER
     Dosage: 30 MG, 1X/DAY;QD, 30 MG, 1X/DAY:QD, TRANSDERMAL
     Route: 062
     Dates: start: 20090801

REACTIONS (4)
  - DECREASED APPETITE [None]
  - DEPRESSION [None]
  - INSOMNIA [None]
  - SUICIDAL IDEATION [None]
